FAERS Safety Report 10370550 (Version 1)
Quarter: 2014Q3

REPORT INFORMATION
  Report Type: Spontaneous
  Country: US (occurrence: US)
  Receive Date: 20140808
  Receipt Date: 20140808
  Transmission Date: 20150326
  Serious: Yes (Hospitalization)
  Sender: FDA-Public Use
  Company Number: US-BAYER-2014-113207

PATIENT
  Age: 56 Year
  Sex: Female

DRUGS (14)
  1. FUROSEMIDE [FUROSEMIDE] [Concomitant]
     Dosage: 80 MG, TID
  2. POTASSIUM CHLORIDE. [Concomitant]
     Active Substance: POTASSIUM CHLORIDE
     Dosage: DAILY DOSE 10 MEQ
  3. NOVOLOG [Concomitant]
     Active Substance: INSULIN ASPART
     Dosage: 35 UNITS WITH MEALS
  4. DILTIAZEM [Concomitant]
     Active Substance: DILTIAZEM
     Dosage: DAILY DOSE 240 MG
  5. WARFARIN [Concomitant]
     Active Substance: WARFARIN
     Dosage: DAILY DOSE 5.5 MG
  6. ALBUTEROL. [Concomitant]
     Active Substance: ALBUTEROL
     Indication: DYSPNOEA
     Dosage: 1-2 PUFFS AS NEEDED
  7. MUPIROCIN. [Concomitant]
     Active Substance: MUPIROCIN
     Indication: CELLULITIS
     Dosage: APPLIED TOPICALLY TWICE DAILY
     Route: 061
  8. MOXIFLOXACIN ORAL [Suspect]
     Active Substance: MOXIFLOXACIN
     Indication: FOLLICULITIS
     Dosage: 400 MG, BID
  9. MOXIFLOXACIN ORAL [Suspect]
     Active Substance: MOXIFLOXACIN
     Indication: CELLULITIS
  10. CLOPIDOGREL [Concomitant]
     Active Substance: CLOPIDOGREL BISULFATE
     Dosage: DAILY DOSE 75 MG
  11. PREGABALIN. [Concomitant]
     Active Substance: PREGABALIN
     Dosage: 100 MG, TID
  12. SOTALOL. [Concomitant]
     Active Substance: SOTALOL
     Dosage: 80 MG, BID
  13. MECLIZINE [Concomitant]
     Active Substance: MECLIZINE\MECLIZINE HYDROCHLORIDE
     Dosage: 25 MG, PRN
  14. NARATRIPTAN [Concomitant]
     Active Substance: NARATRIPTAN HYDROCHLORIDE
     Dosage: DAILY DOSE 2.5 MG

REACTIONS (4)
  - Oral candidiasis [Recovered/Resolved]
  - Toxic epidermal necrolysis [Recovered/Resolved]
  - Dyspnoea [None]
  - Skin exfoliation [Recovered/Resolved]
